FAERS Safety Report 10069727 (Version 1)
Quarter: 2014Q2

REPORT INFORMATION
  Report Type: Spontaneous
  Country: ES (occurrence: ES)
  Receive Date: 20140410
  Receipt Date: 20140410
  Transmission Date: 20141212
  Serious: Yes (Death)
  Sender: FDA-Public Use
  Company Number: ES-CELGENEUS-144-21660-14035421

PATIENT
  Age: 37 Year
  Sex: Male

DRUGS (4)
  1. ABRAXANE [Suspect]
     Indication: BREAST CANCER METASTATIC
     Dosage: 125 MILLIGRAM/SQ. METER
     Route: 065
  2. AVASTIN [Concomitant]
     Indication: BREAST CANCER METASTATIC
     Route: 065
  3. XELODA [Concomitant]
     Indication: BREAST CANCER METASTATIC
     Route: 065
     Dates: start: 20130822
  4. BEVACIZUMAB [Concomitant]
     Indication: BREAST CANCER METASTATIC
     Route: 065

REACTIONS (3)
  - Death [Fatal]
  - Breast cancer metastatic [Unknown]
  - Diarrhoea infectious [Unknown]
